FAERS Safety Report 6469608-6 (Version None)
Quarter: 2009Q4

REPORT INFORMATION
  Report Type: 
  Country: None (occurrence: None)
  Receive Date: 20091130
  Receipt Date: 20091117
  Transmission Date: 20100525
  Serious: Yes (Disabling, Other)
  Sender: FDA-Public Use
  Company Number: 2009-04945

PATIENT
  Age: 83 Year
  Sex: Male
  Weight: 60 kg

DRUGS (5)
  1. VELCADE [Suspect]
     Indication: MULTIPLE MYELOMA
     Dosage: 3.5 MG, INTRAVENOUS ; 2.18 MG, INTRAVENOUS
     Route: 042
     Dates: start: 20090710, end: 20091005
  2. MORPHINE SULFATE [Concomitant]
  3. LYTOS (CLODRONATE DISODIUM) [Concomitant]
  4. BACTRIM [Concomitant]
  5. DEXAMETHASONE TAB [Concomitant]

REACTIONS (2)
  - KERATITIS [None]
  - VISUAL ACUITY REDUCED [None]
